FAERS Safety Report 5754771-2 (Version None)
Quarter: 2008Q2

REPORT INFORMATION
  Report Type: 
  Country: None (occurrence: None)
  Receive Date: 20080530
  Receipt Date: 20080528
  Transmission Date: 20081010
  Serious: Yes (Hospitalization, Other)
  Sender: FDA-Public Use
  Company Number: PL-GILEAD-2008-0014773

PATIENT
  Sex: Male

DRUGS (7)
  1. ADEFOVIR DIPIVOXIL KIT [Suspect]
     Indication: HEPATITIS B
     Route: 048
     Dates: start: 20070604
  2. OMEPRAZOLE [Concomitant]
     Dates: start: 20050101
  3. FUROSEMIDE [Concomitant]
     Dates: start: 20050101
  4. LIPANCREA [Concomitant]
     Dates: start: 20050101
  5. LIPANCREA [Concomitant]
     Dates: start: 20071110
  6. AMILORIDE HYDROCHLORIDE [Concomitant]
     Dates: start: 20050101
  7. SIMETHICONE [Concomitant]
     Dates: start: 20080116

REACTIONS (2)
  - ASCITES [None]
  - BLOOD ALBUMIN DECREASED [None]
